FAERS Safety Report 6437307-2 (Version None)
Quarter: 2009Q4

REPORT INFORMATION
  Report Type: 
  Country: None (occurrence: None)
  Receive Date: 20091112
  Receipt Date: 20091102
  Transmission Date: 20100525
  Serious: Yes (Other)
  Sender: FDA-Public Use
  Company Number: FR-ROCHE-667533

PATIENT
  Age: 66 Year
  Sex: Female

DRUGS (1)
  1. TAMIFLU [Suspect]
     Indication: DRUG USE FOR UNKNOWN INDICATION
     Route: 065
     Dates: start: 20090925, end: 20091001

REACTIONS (4)
  - BALANCE DISORDER [None]
  - CONJUNCTIVITIS [None]
  - PAIN [None]
  - TREMOR [None]
